FAERS Safety Report 4490134-8 (Version None)
Quarter: 2004Q4

REPORT INFORMATION
  Report Type: 
  Country: None (occurrence: None)
  Receive Date: 20041028
  Receipt Date: 20041014
  Transmission Date: 20050328
  Serious: Yes (Hospitalization)
  Sender: FDA-Public Use
  Company Number: 04-NIP00126

PATIENT
  Age: 60 Year
  Sex: Male

DRUGS (2)
  1. NIPENT [Suspect]
     Dosage: 8 MG, 2 CYCLES, INTRAVENOUS; 6 MG, INTRAVENOUS
     Route: 042
  2. CYTOXAN [Suspect]
     Dosage: 1200 MG, 2 CYCLES, INTRAVENOUS; 100 MG, INTRAVENOUS
     Route: 042

REACTIONS (5)
  - CYSTITIS [None]
  - DYSURIA [None]
  - PNEUMONIA VIRAL [None]
  - RED BLOOD CELLS URINE POSITIVE [None]
  - THROMBOSIS [None]
